FAERS Safety Report 9546511 (Version 1)
Quarter: 2013Q3

REPORT INFORMATION
  Report Type: Report from Study
  Country: BE (occurrence: BE)
  Receive Date: 20130923
  Receipt Date: 20130923
  Transmission Date: 20140515
  Serious: Yes (Death)
  Sender: FDA-Public Use
  Company Number: PHHY2013BE105024

PATIENT
  Sex: Female

DRUGS (2)
  1. SANDOSTATINE LAR [Suspect]
     Indication: POST GASTRIC SURGERY SYNDROME
     Dosage: 20 MG, QMO
     Route: 030
  2. SANDOSTATINE LAR [Suspect]
     Dosage: 20 MG, ONCE IN A MONTH
     Route: 030
     Dates: start: 20130425

REACTIONS (1)
  - Death [Fatal]
